FAERS Safety Report 19208241 (Version 3)
Quarter: 2022Q2

REPORT INFORMATION
  Report Type: Spontaneous
  Country: FR (occurrence: FR)
  Receive Date: 20210503
  Receipt Date: 20220519
  Transmission Date: 20220721
  Serious: Yes (Hospitalization, Disabling, Other)
  Sender: FDA-Public Use
  Company Number: FR-002147023-NVSC2020FR327049

PATIENT
  Age: 52 Year
  Sex: Female
  Weight: 61 kg

DRUGS (21)
  1. CYPROTERONE ACETATE [Suspect]
     Active Substance: CYPROTERONE ACETATE
     Indication: Hyperandrogenism
     Dosage: 0.5 DF (50 MG), 7 DAYS PER MONTH
     Route: 048
     Dates: start: 199806, end: 1999
  2. CYPROTERONE ACETATE [Suspect]
     Active Substance: CYPROTERONE ACETATE
     Indication: Hyperandrogenism
     Dosage: SEVEN DAYS PER MONTH
     Route: 065
     Dates: start: 2000, end: 2004
  3. CYPROTERONE ACETATE [Suspect]
     Active Substance: CYPROTERONE ACETATE
     Indication: Hyperandrogenism
     Dosage: 0.5 DF,  (20 DAYS PER MONTH
     Route: 048
     Dates: start: 200507, end: 201108
  4. CYPROTERONE ACETATE [Suspect]
     Active Substance: CYPROTERONE ACETATE
     Indication: Hyperandrogenism
     Dosage: TWENTY DAYS PER MONTH
     Route: 065
     Dates: start: 20120828, end: 201506
  5. CYPROTERONE ACETATE [Suspect]
     Active Substance: CYPROTERONE ACETATE
     Indication: Hyperandrogenism
     Dosage: 0.5 DF, OTHER (20 DAYS PER MONTH)
     Route: 048
     Dates: end: 201506
  6. MIRENA [Suspect]
     Active Substance: LEVONORGESTREL
     Indication: Hyperandrogenism
     Dosage: 20?G/DAY
     Route: 015
     Dates: start: 20040901, end: 20050913
  7. ESTRADIOL [Suspect]
     Active Substance: ESTRADIOL
     Indication: Hyperandrogenism
     Dosage: 1 MG (20 DAYS PER MONTH)
     Route: 065
     Dates: start: 200507, end: 201108
  8. ESTRADIOL [Suspect]
     Active Substance: ESTRADIOL
     Indication: Hormone replacement therapy
     Route: 065
     Dates: start: 200507, end: 201108
  9. CYPROTERONE [Suspect]
     Active Substance: CYPROTERONE
     Dosage: UNK UNK, UNKNOWN
     Route: 065
     Dates: start: 20090615
  10. CYPROTERONE [Suspect]
     Active Substance: CYPROTERONE
     Dosage: 50 MG, UNKNOWN
     Route: 065
     Dates: start: 20110404
  11. CYPROTERONE [Suspect]
     Active Substance: CYPROTERONE
     Dosage: 50 MG, UNKNOWN
     Route: 065
     Dates: start: 20110606
  12. CYPROTERONE [Suspect]
     Active Substance: CYPROTERONE
     Dosage: 50 MG, UNKNOWN
     Route: 065
  13. ESTROGENS [Suspect]
     Active Substance: ESTROGENS
     Indication: Product used for unknown indication
     Dosage: UNK
     Route: 065
  14. ETHINYL ESTRADIOL\LEVONORGESTREL [Suspect]
     Active Substance: ETHINYL ESTRADIOL\LEVONORGESTREL
     Indication: Product used for unknown indication
     Route: 065
  15. ETHINYL ESTRADIOL\LEVONORGESTREL [Suspect]
     Active Substance: ETHINYL ESTRADIOL\LEVONORGESTREL
     Indication: Hyperandrogenism
     Route: 065
     Dates: start: 1998, end: 1999
  16. DESOGESTREL\ETHINYL ESTRADIOL [Suspect]
     Active Substance: DESOGESTREL\ETHINYL ESTRADIOL
     Indication: Hyperandrogenism
     Dosage: UNK (7 DAYS PER MONTH)
     Route: 048
     Dates: start: 2000, end: 2004
  17. DESOGESTREL\ETHINYL ESTRADIOL [Suspect]
     Active Substance: DESOGESTREL\ETHINYL ESTRADIOL
     Indication: Contraception
  18. MOTILIUM [Concomitant]
     Active Substance: DOMPERIDONE
     Indication: Product used for unknown indication
     Dosage: 1 DF, TID
     Route: 065
  19. KETOPROFEN [Concomitant]
     Active Substance: KETOPROFEN
     Indication: Product used for unknown indication
     Dosage: UNK
     Route: 065
  20. KETOPROFEN [Concomitant]
     Active Substance: KETOPROFEN
     Indication: Product used for unknown indication
     Dosage: UNK
     Route: 065
  21. ZOMIG [Concomitant]
     Active Substance: ZOLMITRIPTAN

REACTIONS (35)
  - Meningioma [Recovered/Resolved]
  - Cerebral haematoma [Unknown]
  - Tumour haemorrhage [Unknown]
  - Hypothermia [Unknown]
  - Epilepsy [Unknown]
  - Seizure [Unknown]
  - Tension headache [Unknown]
  - Pain in extremity [Unknown]
  - Pain of skin [Unknown]
  - Arthralgia [Unknown]
  - Post procedural oedema [Unknown]
  - Language disorder [Unknown]
  - Psychomotor retardation [Unknown]
  - Feeling abnormal [Unknown]
  - Aphasia [Unknown]
  - Dysarthria [Unknown]
  - Fatigue [Unknown]
  - Poor quality sleep [Unknown]
  - Migraine [Unknown]
  - Musculoskeletal stiffness [Unknown]
  - Skin depigmentation [Unknown]
  - Scar [Unknown]
  - Headache [Unknown]
  - Skin lesion [Unknown]
  - Nausea [Unknown]
  - Squamous cell carcinoma [Unknown]
  - Somnolence [Unknown]
  - Headache [Not Recovered/Not Resolved]
  - Cognitive disorder [Recovered/Resolved]
  - Intracranial tumour haemorrhage [Recovered/Resolved]
  - Muscle tightness [Unknown]
  - Oedema [Recovered/Resolved]
  - Facial paralysis [Unknown]
  - Vomiting [Unknown]
  - Intracranial pressure increased [Recovered/Resolved]

NARRATIVE: CASE EVENT DATE: 20140805
